FAERS Safety Report 5320869-6 (Version None)
Quarter: 2007Q2

REPORT INFORMATION
  Report Type: 
  Country: None (occurrence: None)
  Receive Date: 20070504
  Receipt Date: 20070423
  Transmission Date: 20071010
  Serious: Yes (Other)
  Sender: FDA-Public Use
  Company Number: US019532

PATIENT
  Age: 50 Year
  Sex: Male

DRUGS (4)
  1. TRISENOX [Suspect]
     Indication: ACUTE PROMYELOCYTIC LEUKAEMIA
     Dosage: 9.48 MG QD INTRAVENOUS DRIP
     Route: 041
     Dates: start: 20061207, end: 20070105
  2. TRISENOX [Suspect]
     Indication: ACUTE PROMYELOCYTIC LEUKAEMIA
     Dosage: 9.48 MG QD INTRAVENOUS DRIP
     Route: 041
     Dates: start: 20070112, end: 20070128
  3. FLUCONAZOLE [Suspect]
     Dosage: 100 MG QD ORAL
     Route: 048
     Dates: start: 20061209, end: 20070208
  4. FAMOTIDINE [Suspect]
     Dosage: 20 MG QD ORAL
     Route: 048
     Dates: start: 20070201, end: 20070219

REACTIONS (5)
  - ALANINE AMINOTRANSFERASE INCREASED [None]
  - CSF TEST ABNORMAL [None]
  - CYTOLOGY ABNORMAL [None]
  - GAMMA-GLUTAMYLTRANSFERASE INCREASED [None]
  - HEPATIC FUNCTION ABNORMAL [None]
